FAERS Safety Report 7001740-0 (Version None)
Quarter: 2010Q3

REPORT INFORMATION
  Report Type: 
  Country: None (occurrence: None)
  Receive Date: 20100920
  Receipt Date: 20100910
  Transmission Date: 20110219
  Serious: Yes (Hospitalization)
  Sender: FDA-Public Use
  Company Number: GXKR2010IT10352

PATIENT
  Sex: Male

DRUGS (1)
  1. ATENOLOL (NGX) [Suspect]
     Route: 065

REACTIONS (1)
  - NODAL ARRHYTHMIA [None]
